FAERS Safety Report 9563560 (Version 1)
Quarter: 2013Q3

REPORT INFORMATION
  Report Type: Spontaneous
  Country: US (occurrence: None)
  Receive Date: 20130926
  Receipt Date: 20130926
  Transmission Date: 20140515
  Serious: Yes (Hospitalization)
  Sender: FDA-Public Use
  Company Number: None

PATIENT
  Age: 67 Year
  Sex: Female
  Weight: 49.39 kg

DRUGS (2)
  1. CARBOPLATIN [Suspect]
  2. PACLITAXEL [Suspect]

REACTIONS (6)
  - Asthenia [None]
  - Dizziness [None]
  - Haematochezia [None]
  - Anaemia [None]
  - Rectal haemorrhage [None]
  - Haemorrhoids [None]
